FAERS Safety Report 9319641 (Version 12)
Quarter: 2016Q2

REPORT INFORMATION
  Report Type: Spontaneous
  Country: US (occurrence: US)
  Receive Date: 20130530
  Receipt Date: 20160607
  Transmission Date: 20160815
  Serious: Yes (Hospitalization, Other)
  Sender: FDA-Public Use
  Company Number: US-GLAXOSMITHKLINE-A1018095A

PATIENT
  Age: 38 Year
  Sex: Female
  Weight: 66 kg

DRUGS (15)
  1. FLOLAN [Suspect]
     Active Substance: EPOPROSTENOL SODIUM
     Indication: PULMONARY HYPERTENSION
     Dosage: UNK
     Dates: start: 20130308
  2. FLOLAN [Suspect]
     Active Substance: EPOPROSTENOL SODIUM
     Dosage: 21 NG/KG/MIN CONTINUOUS
  3. FLOLAN [Suspect]
     Active Substance: EPOPROSTENOL SODIUM
     Dosage: UNK
     Dates: start: 20130313
  4. FUROSEMIDE. [Concomitant]
     Active Substance: FUROSEMIDE
  5. WARFARIN [Concomitant]
     Active Substance: WARFARIN
  6. COUMADIN [Concomitant]
     Active Substance: WARFARIN SODIUM
  7. FLOLAN [Suspect]
     Active Substance: EPOPROSTENOL SODIUM
     Indication: PULMONARY HYPERTENSION
     Dosage: UNK
     Dates: start: 20130308
  8. FLOLAN [Suspect]
     Active Substance: EPOPROSTENOL SODIUM
     Dosage: 21 NG/KG/MIN
  9. FLOLAN [Suspect]
     Active Substance: EPOPROSTENOL SODIUM
     Dosage: 21.5 NG/KG/MIN CONTINUOUS
     Route: 042
  10. PLAQUENIL [Concomitant]
     Active Substance: HYDROXYCHLOROQUINE SULFATE
  11. FLOLAN [Suspect]
     Active Substance: EPOPROSTENOL SODIUM
     Dosage: UNK
     Dates: start: 20130308
  12. FLOLAN [Suspect]
     Active Substance: EPOPROSTENOL SODIUM
     Dosage: 24 NG/KG/MIN
  13. LETAIRIS [Concomitant]
     Active Substance: AMBRISENTAN
  14. FLOLAN [Suspect]
     Active Substance: EPOPROSTENOL SODIUM
     Indication: COR PULMONALE CHRONIC
     Dosage: 5 NG/KG/MINUTE CONTINOUSLY12 NG/KG/MINUTE CONCENTRATION 15,000 NG/ML PUMP RATE 76 ML/DAY VIAL S[...]
     Route: 042
     Dates: start: 20130308
  15. ADCIRCA [Concomitant]
     Active Substance: TADALAFIL

REACTIONS (30)
  - Limb discomfort [Recovering/Resolving]
  - Peripheral swelling [Recovering/Resolving]
  - Swelling face [Recovering/Resolving]
  - Application site papules [Unknown]
  - Dermatitis contact [Unknown]
  - Drug hypersensitivity [Unknown]
  - Catheter site discolouration [Unknown]
  - Catheter site scab [Unknown]
  - Upper respiratory tract congestion [Unknown]
  - Sputum increased [Unknown]
  - Meningitis viral [Recovered/Resolved]
  - Paranasal sinus discomfort [Recovering/Resolving]
  - Catheter site erythema [Unknown]
  - Pain in extremity [Unknown]
  - Muscle spasms [Recovering/Resolving]
  - Skin irritation [Unknown]
  - Catheter site mass [Unknown]
  - Catheter site infection [Unknown]
  - Central venous catheter removal [Recovered/Resolved]
  - Mobility decreased [Unknown]
  - Central venous catheterisation [Recovered/Resolved]
  - Catheter site haemorrhage [Recovered/Resolved]
  - Nasal congestion [Recovering/Resolving]
  - Infusion site pain [Unknown]
  - Viral upper respiratory tract infection [Unknown]
  - Infusion site pruritus [Recovered/Resolved]
  - Nasal discharge discolouration [Recovering/Resolving]
  - Catheter site discharge [Unknown]
  - Dysphonia [Unknown]
  - Back pain [Unknown]

NARRATIVE: CASE EVENT DATE: 20151031
